FAERS Safety Report 4840508-8 (Version None)
Quarter: 2005Q4

REPORT INFORMATION
  Report Type: 
  Country: None (occurrence: None)
  Receive Date: 20051130
  Receipt Date: 20050830
  Transmission Date: 20060501
  Serious: Yes (Life-Threatening, Hospitalization)
  Sender: FDA-Public Use
  Company Number: US-BRISTOL-MYERS SQUIBB COMPANY-13095757

PATIENT
  Sex: Male
  Weight: 84 kg

DRUGS (1)
  1. CETUXIMAB [Suspect]
     Indication: RECTAL CANCER METASTATIC
     Route: 042
     Dates: start: 20050808, end: 20050808

REACTIONS (1)
  - HYPERSENSITIVITY [None]
